FAERS Safety Report 4336268-X (Version None)
Quarter: 2004Q2

REPORT INFORMATION
  Report Type: 
  Country: None (occurrence: None)
  Receive Date: 20040407
  Receipt Date: 20040323
  Transmission Date: 20050107
  Serious: Yes (Hospitalization)
  Sender: FDA-Public Use
  Company Number: US_0403101774

PATIENT
  Age: 63 Year
  Sex: Female
  Weight: 79 kg

DRUGS (9)
  1. HUMULIN 70/30 [Suspect]
     Indication: DIABETES MELLITUS
     Dosage: 19 U AS NEEDED
     Dates: start: 20000101
  2. NEORAL [Concomitant]
  3. CELLCEPT [Concomitant]
  4. NEURONTIN [Concomitant]
  5. FOLIC ACID [Concomitant]
  6. MAGNESIUM OXIDE [Concomitant]
  7. ASPIRIN [Concomitant]
  8. VITAMIN B-12 [Concomitant]
  9. CHILDREN'S CHEWABLE VITAMINS [Concomitant]

REACTIONS (4)
  - APPENDICITIS PERFORATED [None]
  - HAEMATOMA [None]
  - OVARIAN NEOPLASM [None]
  - VASCULAR RUPTURE [None]
